FAERS Safety Report 5929647-8 (Version None)
Quarter: 2008Q3

REPORT INFORMATION
  Report Type: 
  Country: None (occurrence: None)
  Receive Date: 20080929
  Receipt Date: 20080602
  Transmission Date: 20090109
  Serious: No
  Sender: FDA-Public Use
  Company Number: PHEH2008US03816

PATIENT
  Age: 44 Year
  Sex: Female
  Weight: 71.7 kg

DRUGS (2)
  1. TASIGNA [Suspect]
     Indication: CHRONIC MYELOID LEUKAEMIA
     Dosage: 400 MG, BID, ORAL
     Route: 048
     Dates: start: 20080301
  2. NEXIUM [Concomitant]

REACTIONS (2)
  - PAIN OF SKIN [None]
  - RASH MACULO-PAPULAR [None]
